FAERS Safety Report 6158295-2 (Version None)
Quarter: 2009Q2

REPORT INFORMATION
  Report Type: 
  Country: None (occurrence: None)
  Receive Date: 20090417
  Receipt Date: 20070717
  Transmission Date: 20091009
  Serious: Yes (Hospitalization, Other)
  Sender: FDA-Public Use
  Company Number: US-ASTRAZENECA-2006UW05344

PATIENT
  Age: 48 Year
  Sex: Male
  Weight: 64 kg

DRUGS (34)
  1. SEROQUEL [Suspect]
     Route: 048
  2. ZYPREXA [Suspect]
     Indication: DEPRESSION
     Dates: start: 19970101, end: 20050101
  3. ZYPREXA [Suspect]
     Indication: SCHIZOPHRENIA
     Dates: start: 19970101, end: 20050101
  4. RISPERDAL [Suspect]
     Indication: DEPRESSION
     Dosage: 2 MG TO 4 MG
     Dates: start: 20050101, end: 20060101
  5. RISPERDAL [Suspect]
     Indication: SCHIZOPHRENIA
     Dosage: 2 MG TO 4 MG
     Dates: start: 20050101, end: 20060101
  6. EFFEXOR XR [Concomitant]
  7. GEODON [Concomitant]
  8. DOXEPIN HCL [Concomitant]
  9. SERAX [Concomitant]
  10. CLONIDINE [Concomitant]
  11. TYLENOL [Concomitant]
  12. COMPAZINE [Concomitant]
  13. IMODIUM [Concomitant]
  14. LISINOPRIL [Concomitant]
  15. TRAZODONE HCL [Concomitant]
  16. HUMULIN R [Concomitant]
  17. GLUCOPHAGE [Concomitant]
  18. NEURONTIN [Concomitant]
  19. PERCOCET [Concomitant]
  20. GLUCOTROL [Concomitant]
  21. ENALAPRIL [Concomitant]
  22. LANTUS [Concomitant]
  23. METOPROLOL TARTRATE [Concomitant]
  24. ATIVAN [Concomitant]
  25. ATORVASTATIN [Concomitant]
  26. KEPPRA [Concomitant]
  27. LABETALOL HCL [Concomitant]
  28. ALBUTEROL [Concomitant]
  29. NORVASC [Concomitant]
  30. ZOCOR [Concomitant]
  31. ASPIRIN [Concomitant]
  32. LOSARTAN POTASSIUM [Concomitant]
  33. DILANTIN [Concomitant]
  34. LOVENOX [Concomitant]

REACTIONS (28)
  - CEREBROVASCULAR ACCIDENT [None]
  - CONVULSION [None]
  - DEEP VEIN THROMBOSIS [None]
  - DELIRIUM TREMENS [None]
  - DIABETES MELLITUS [None]
  - DRUG DEPENDENCE [None]
  - DYSARTHRIA [None]
  - DYSPHAGIA [None]
  - HALLUCINATION, AUDITORY [None]
  - HEADACHE [None]
  - HEMIPARESIS [None]
  - MAJOR DEPRESSION [None]
  - MENTAL DISORDER DUE TO A GENERAL MEDICAL CONDITION [None]
  - PAIN [None]
  - PANCREATITIS [None]
  - PENILE ULCERATION [None]
  - PNEUMONIA ASPIRATION [None]
  - POLYSUBSTANCE DEPENDENCE [None]
  - PRODUCTIVE COUGH [None]
  - PULMONARY OEDEMA [None]
  - RENAL FAILURE CHRONIC [None]
  - SCHIZOPHRENIA [None]
  - SCHIZOPHRENIA, PARANOID TYPE [None]
  - SUICIDAL IDEATION [None]
  - SUICIDE ATTEMPT [None]
  - SYNCOPE [None]
  - TACHYCARDIA [None]
  - VOCAL CORD PARALYSIS [None]
